FAERS Safety Report 7788230-2 (Version None)
Quarter: 2011Q3

REPORT INFORMATION
  Report Type: 
  Country: None (occurrence: None)
  Receive Date: 20110927
  Receipt Date: 20110913
  Transmission Date: 20111222
  Serious: Yes (Death, Other)
  Sender: FDA-Public Use
  Company Number: 2011MA013466

PATIENT
  Age: 59 Year

DRUGS (2)
  1. TRASTUZUMAB (TRASTUZUMAB) [Suspect]
     Indication: BREAST CANCER METASTATIC
  2. IRINOTECAN HYDROCHLORIDE [Suspect]
     Indication: BREAST CANCER METASTATIC

REACTIONS (3)
  - NEUTROPENIA [None]
  - SEPSIS [None]
  - TOXICITY TO VARIOUS AGENTS [None]
